FAERS Safety Report 4483451-9 (Version None)
Quarter: 2004Q4

REPORT INFORMATION
  Report Type: 
  Country: None (occurrence: None)
  Receive Date: 20041020
  Receipt Date: 20040930
  Transmission Date: 20050328
  Serious: Yes (Other)
  Sender: FDA-Public Use
  Company Number: USA041079860

PATIENT
  Age: 16 Year
  Sex: Male

DRUGS (3)
  1. STRATTERA [Suspect]
     Indication: ATTENTION DEFICIT/HYPERACTIVITY DISORDER
  2. ZOLOFT [Concomitant]
  3. CONCERTA [Concomitant]

REACTIONS (1)
  - INTENTIONAL SELF-INJURY [None]
